FAERS Safety Report 5574491-7 (Version None)
Quarter: 2007Q4

REPORT INFORMATION
  Report Type: 
  Country: None (occurrence: None)
  Receive Date: 20071227
  Receipt Date: 20071218
  Transmission Date: 20080405
  Serious: Yes (Other)
  Sender: FDA-Public Use
  Company Number: US-ROCHE-528927

PATIENT
  Age: 62 Year
  Sex: Female

DRUGS (2)
  1. BONIVA [Suspect]
     Indication: DRUG USE FOR UNKNOWN INDICATION
     Route: 065
     Dates: end: 20060101
  2. SYNTHROID [Concomitant]

REACTIONS (2)
  - DYSPEPSIA [None]
  - PHARYNGOESOPHAGEAL DIVERTICULUM [None]
